FAERS Safety Report 6810680-9 (Version None)
Quarter: 2010Q2

REPORT INFORMATION
  Report Type: 
  Country: None (occurrence: None)
  Receive Date: 20100630
  Receipt Date: 20071105
  Transmission Date: 20101027
  Serious: No
  Sender: FDA-Public Use
  Company Number: US-PFIZER INC-2007082808

PATIENT
  Sex: Male

DRUGS (1)
  1. NICOTROL [Suspect]
     Route: 055

REACTIONS (3)
  - DYSGEUSIA [None]
  - ORAL DISCOMFORT [None]
  - PRODUCT QUALITY ISSUE [None]
